FAERS Safety Report 13947816 (Version 2)
Quarter: 2017Q4

REPORT INFORMATION
  Report Type: Report from Study
  Country: AU (occurrence: AU)
  Receive Date: 20170908
  Receipt Date: 20171213
  Transmission Date: 20180320
  Serious: Yes (Death, Hospitalization)
  Sender: FDA-Public Use
  Company Number: AU-ASTRAZENECA-2017SE90418

PATIENT
  Age: 27810 Day
  Sex: Male
  Weight: 59 kg

DRUGS (7)
  1. CRESTOR [Concomitant]
     Active Substance: ROSUVASTATIN CALCIUM
     Route: 048
     Dates: start: 2007
  2. UREA. [Concomitant]
     Active Substance: UREA
     Indication: DRY SKIN
     Dosage: 2 UNKNOWN BID
     Route: 003
     Dates: start: 20151207
  3. AVAPRO [Concomitant]
     Active Substance: IRBESARTAN
     Route: 048
     Dates: start: 2006
  4. NASONEX JUNIOR [Concomitant]
     Indication: PROPHYLAXIS
     Dosage: 1 PUFF PRN
     Route: 045
     Dates: start: 2008
  5. TAGRISSO [Suspect]
     Active Substance: OSIMERTINIB
     Indication: NON-SMALL CELL LUNG CANCER
     Route: 048
     Dates: start: 20151027
  6. DIABEX [Concomitant]
     Active Substance: METFORMIN HYDROCHLORIDE
     Route: 048
     Dates: start: 2003
  7. UREA. [Concomitant]
     Active Substance: UREA
     Indication: PARONYCHIA
     Dosage: 2 UNKNOWN BID
     Route: 003
     Dates: start: 20151207

REACTIONS (1)
  - Pyrexia [Not Recovered/Not Resolved]

NARRATIVE: CASE EVENT DATE: 20170901
